FAERS Safety Report 9232117 (Version 1)
Quarter: 2013Q2

REPORT INFORMATION
  Report Type: Spontaneous
  Country: US (occurrence: US)
  Receive Date: 20130415
  Receipt Date: 20130415
  Transmission Date: 20140414
  Serious: No
  Sender: FDA-Public Use
  Company Number: US-PFIZER INC-2013113702

PATIENT
  Sex: Female

DRUGS (3)
  1. CORTEF [Suspect]
     Dosage: UNK
  2. FLORINEF [Suspect]
     Dosage: UNK
  3. SYNTHROID [Suspect]
     Dosage: UNK

REACTIONS (4)
  - Dry throat [Unknown]
  - Cough [Unknown]
  - Fatigue [Unknown]
  - Pyrexia [Unknown]
